FAERS Safety Report 18767170 (Version 1)
Quarter: 2021Q1

REPORT INFORMATION
  Report Type: Spontaneous
  Country: US (occurrence: US)
  Receive Date: 20210120
  Receipt Date: 20210120
  Transmission Date: 20210419
  Serious: No
  Sender: FDA-Public Use
  Company Number: None

PATIENT
  Sex: Male

DRUGS (2)
  1. CYTARABINE 1330MG [Suspect]
     Active Substance: CYTARABINE
     Dates: end: 20201119
  2. DAUNORUBICIN 168MG [Suspect]
     Active Substance: DAUNORUBICIN HYDROCHLORIDE
     Dates: end: 20201114

REACTIONS (1)
  - Myocardial infarction [None]

NARRATIVE: CASE EVENT DATE: 20191119
